FAERS Safety Report 9163014 (Version 1)
Quarter: 2012Q4

REPORT INFORMATION
  Report Type: 
  Country: US (occurrence: US)
  Receive Date: 20121218
  Receipt Date: 20121218
  Transmission Date: 20130627
  Serious: Yes (Other)
  Sender: FDA-Public Use
  Company Number: US-RB-047665-12

PATIENT
  Age: 15 Year
  Sex: Female

DRUGS (1)
  1. DELSYM [Suspect]
     Dosage: Pateint took half of a 5oz bottle and then some more
     Route: 048
     Dates: start: 20121211

REACTIONS (4)
  - Drug abuse [Recovered/Resolved]
  - Loss of consciousness [Recovered/Resolved]
  - Dyspnoea [Recovered/Resolved]
  - Loss of consciousness [Recovered/Resolved]
